FAERS Safety Report 8078018-X (Version None)
Quarter: 2012Q1

REPORT INFORMATION
  Report Type: 
  Country: None (occurrence: None)
  Receive Date: 20120127
  Receipt Date: 20110107
  Transmission Date: 20120608
  Serious: No
  Sender: FDA-Public Use
  Company Number: US-ABBOTT-10P-163-0679264-00

PATIENT
  Sex: Female
  Weight: 68.1 kg

DRUGS (9)
  1. NORVASC [Concomitant]
     Indication: HYPERTENSION
  2. GLIMEPIRIDE [Concomitant]
     Indication: DIABETES MELLITUS
  3. CLARINEX [Concomitant]
     Indication: HYPERSENSITIVITY
  4. HUMIRA [Suspect]
     Dates: start: 20100701
  5. HUMIRA [Suspect]
     Indication: PSORIASIS
     Route: 058
     Dates: start: 20080101, end: 20091201
  6. HUMIRA [Suspect]
     Indication: PSORIATIC ARTHROPATHY
     Route: 058
     Dates: start: 20100301, end: 20100301
  7. HUMIRA [Suspect]
     Route: 058
     Dates: start: 20100501
  8. PREVACID [Concomitant]
     Indication: GASTROOESOPHAGEAL REFLUX DISEASE
  9. PERCOCET [Concomitant]
     Indication: ARTHRALGIA

REACTIONS (10)
  - DRUG INEFFECTIVE [None]
  - PSORIASIS [None]
  - ALOPECIA [None]
  - PRURITUS [None]
  - PAIN [None]
  - URINARY TRACT INFECTION [None]
  - BURNING SENSATION [None]
  - EXPIRED DRUG ADMINISTERED [None]
  - UPPER RESPIRATORY TRACT INFECTION [None]
  - SKIN FISSURES [None]
